FAERS Safety Report 8448054-X (Version None)
Quarter: 2012Q2

REPORT INFORMATION
  Report Type: 
  Country: None (occurrence: None)
  Receive Date: 20120619
  Receipt Date: 20120614
  Transmission Date: 20120825
  Serious: No
  Sender: FDA-Public Use
  Company Number: US-BAYER-2012-060090

PATIENT
  Age: 92 Year
  Sex: Female
  Weight: 73 kg

DRUGS (2)
  1. IBUPROFEN [Concomitant]
  2. ALEVE (CAPLET) [Suspect]
     Indication: BACK PAIN
     Dosage: 2 DF, QD
     Route: 048
     Dates: start: 20120601, end: 20120601

REACTIONS (1)
  - BACK PAIN [None]
